FAERS Safety Report 7812339-8 (Version None)
Quarter: 2011Q4

REPORT INFORMATION
  Report Type: 
  Country: None (occurrence: None)
  Receive Date: 20111013
  Receipt Date: 20111006
  Transmission Date: 20120403
  Serious: Yes (Other)
  Sender: FDA-Public Use
  Company Number: US-GLAXOSMITHKLINE-A0922859A

PATIENT
  Sex: Female

DRUGS (6)
  1. PROVENTIL [Concomitant]
  2. FLOVENT [Suspect]
     Indication: ASTHMA
     Dosage: 1PUFF PER DAY
     Dates: start: 20110101
  3. ADVAIR DISKUS 100/50 [Suspect]
     Indication: ASTHMA
     Dosage: 1PUFF VARIABLE DOSE
     Route: 055
  4. ALBUTEROL INHALER [Concomitant]
  5. BLOOD PRESSURE MEDICATION [Concomitant]
  6. PRILOSEC [Concomitant]

REACTIONS (12)
  - CARDIAC DISORDER [None]
  - DYSPHONIA [None]
  - OROPHARYNGEAL PAIN [None]
  - CATARACT [None]
  - ASTHMA [None]
  - ARTHRALGIA [None]
  - DIZZINESS [None]
  - COUGH [None]
  - FATIGUE [None]
  - WHEEZING [None]
  - DRUG INEFFECTIVE [None]
  - ILL-DEFINED DISORDER [None]
